FAERS Safety Report 12334653 (Version 2)
Quarter: 2016Q2

REPORT INFORMATION
  Report Type: Other
  Country: US (occurrence: US)
  Receive Date: 20160504
  Receipt Date: 20160518
  Transmission Date: 20160815
  Serious: Yes (Other)
  Sender: FDA-Public Use
  Company Number: US-COL_22747_2016

PATIENT
  Age: 61 Year
  Sex: Male

DRUGS (1)
  1. COLGATE TOTAL LASTING WHITE POLAR FRESHMINT [Suspect]
     Active Substance: SODIUM FLUORIDE
     Indication: DENTAL DISORDER PROPHYLAXIS
     Dosage: TWO TEASPOONS/ONCE A DAY/
     Route: 048
     Dates: start: 20160411, end: 20160418

REACTIONS (12)
  - Drooling [Recovered/Resolved]
  - Oral pain [Recovered/Resolved]
  - Gingival pain [Recovered/Resolved]
  - Lip swelling [Recovered/Resolved]
  - Dyspnoea [Recovered/Resolved]
  - Hypersensitivity [Recovered/Resolved]
  - Activities of daily living impaired [Recovered/Resolved]
  - Throat tightness [Recovered/Resolved]
  - Oral discomfort [Recovered/Resolved]
  - Saliva discolouration [Recovered/Resolved]
  - Gingival swelling [Recovered/Resolved]
  - Swelling face [Recovered/Resolved]

NARRATIVE: CASE EVENT DATE: 201604
